FAERS Safety Report 5704264-3 (Version None)
Quarter: 2008Q2

REPORT INFORMATION
  Report Type: 
  Country: None (occurrence: None)
  Receive Date: 20080414
  Receipt Date: 20080407
  Transmission Date: 20081010
  Serious: Yes (Hospitalization)
  Sender: FDA-Public Use
  Company Number: FR-AVENTIS-200810813FR

PATIENT
  Age: 57 Year
  Sex: Female

DRUGS (6)
  1. ARAVA [Suspect]
     Indication: RHEUMATOID ARTHRITIS
     Route: 048
     Dates: start: 20060901
  2. PLAQUENIL                          /00072601/ [Concomitant]
     Route: 048
     Dates: start: 20040101
  3. CORTANCYL [Concomitant]
     Indication: RHEUMATOID ARTHRITIS
     Route: 048
     Dates: start: 20040101
  4. PREVISCAN                          /00789001/ [Concomitant]
     Route: 048
     Dates: start: 20071201
  5. ACTONEL [Concomitant]
     Route: 048
  6. CACIT D3 [Concomitant]
     Route: 048

REACTIONS (1)
  - DEEP VEIN THROMBOSIS [None]
